FAERS Safety Report 5196570-9 (Version None)
Quarter: 2006Q4

REPORT INFORMATION
  Report Type: 
  Country: None (occurrence: None)
  Receive Date: 20061228
  Receipt Date: 20061228
  Transmission Date: 20070319
  Serious: Yes (Other)
  Sender: FDA-Public Use
  Company Number: None

PATIENT
  Sex: Female
  Weight: 115.6672 kg

DRUGS (1)
  1. LEXAPRO [Suspect]
     Indication: DEPRESSION
     Dosage: 10 MG TAB  DAILY  ORAL
     Route: 048
     Dates: start: 20021028

REACTIONS (3)
  - DYSPNOEA [None]
  - ERYTHEMA [None]
  - TREATMENT NONCOMPLIANCE [None]
